FAERS Safety Report 13116618 (Version 1)
Quarter: 2017Q1

REPORT INFORMATION
  Report Type: Spontaneous
  Country: SE (occurrence: SE)
  Receive Date: 20170116
  Receipt Date: 20170116
  Transmission Date: 20170428
  Serious: Yes (Other)
  Sender: FDA-Public Use
  Company Number: SE-AUROBINDO-AUR-APL-2017-00298

PATIENT
  Age: 22 Year
  Sex: Female

DRUGS (1)
  1. ONDANSETRON 4 MG FILM-COATED TABLET [Suspect]
     Active Substance: ONDANSETRON
     Indication: PRODUCT USED FOR UNKNOWN INDICATION
     Dosage: 4 MG, UNK
     Route: 065

REACTIONS (2)
  - Neurological symptom [Recovered/Resolved]
  - Rash [Recovered/Resolved]
